FAERS Safety Report 17211046 (Version 1)
Quarter: 2019Q4

REPORT INFORMATION
  Report Type: Spontaneous
  Country: JP (occurrence: JP)
  Receive Date: 20191228
  Receipt Date: 20191228
  Transmission Date: 20200122
  Serious: Yes (Death, Hospitalization, Other)
  Sender: FDA-Public Use
  Company Number: JP-INCYTE CORPORATION-2019IN013100

PATIENT

DRUGS (3)
  1. CYMERIN [Concomitant]
     Active Substance: RANIMUSTINE
     Indication: ESSENTIAL THROMBOCYTHAEMIA
     Dosage: UNK
     Route: 065
  2. BUSULFAN. [Concomitant]
     Active Substance: BUSULFAN
     Indication: ESSENTIAL THROMBOCYTHAEMIA
     Dosage: UNK
     Route: 065
  3. JAKAVI [Suspect]
     Active Substance: RUXOLITINIB
     Indication: ESSENTIAL THROMBOCYTHAEMIA
     Dosage: UNK
     Route: 048
     Dates: start: 201510, end: 201511

REACTIONS (8)
  - Intra-abdominal haemorrhage [Unknown]
  - Epstein-Barr virus infection [Fatal]
  - Lymphadenopathy [Unknown]
  - Liver disorder [Fatal]
  - Off label use [Unknown]
  - Pancytopenia [Unknown]
  - Rash [Unknown]
  - Drug ineffective [Unknown]
